FAERS Safety Report 8258911-5 (Version None)
Quarter: 2012Q2

REPORT INFORMATION
  Report Type: 
  Country: None (occurrence: None)
  Receive Date: 20120404
  Receipt Date: 20120326
  Transmission Date: 20120825
  Serious: Yes (Hospitalization, Other)
  Sender: FDA-Public Use
  Company Number: US-ELI_LILLY_AND_COMPANY-US201203001134

PATIENT
  Sex: Female
  Weight: 56.689 kg

DRUGS (15)
  1. FORTEO [Suspect]
     Indication: OSTEOPOROSIS
     Dosage: 20 UG, QD
     Dates: start: 20090101
  2. TRAZODONE HCL [Concomitant]
  3. VITAMIN B-12 [Concomitant]
  4. HYDROXYCHLOROQUINE SULFATE [Concomitant]
     Indication: BONE DISORDER
  5. FORTEO [Suspect]
     Dosage: 20 UG, QD
  6. DEXLANSOPRAZOLE [Concomitant]
  7. NEURONTIN [Concomitant]
  8. FENTANYL [Concomitant]
  9. LEVOTHYROXINE SODIUM [Concomitant]
     Indication: THYROID DISORDER
  10. METHADONE HCL [Concomitant]
  11. LIPITOR [Concomitant]
  12. LIDODERM [Concomitant]
  13. BUPROPION HCL [Concomitant]
  14. PRISTIQ [Concomitant]
  15. VITAMIN B COMPLEX CAP [Concomitant]

REACTIONS (2)
  - GALLBLADDER DISORDER [None]
  - DRUG DOSE OMISSION [None]
